FAERS Safety Report 11920526 (Version 1)
Quarter: 2016Q1

REPORT INFORMATION
  Report Type: Spontaneous
  Country: US (occurrence: US)
  Receive Date: 20160115
  Receipt Date: 20160115
  Transmission Date: 20160526
  Serious: No
  Sender: FDA-Public Use
  Company Number: US-009507513-1512USA009920

PATIENT
  Sex: Female

DRUGS (1)
  1. NEXPLANON [Suspect]
     Active Substance: ETONOGESTREL
     Indication: CONTRACEPTION
     Dosage: UNK,1 ROD EVERY THREE YEARS
     Route: 059
     Dates: start: 201306, end: 20151216

REACTIONS (2)
  - Device breakage [Recovered/Resolved]
  - Menstruation irregular [Not Recovered/Not Resolved]
